FAERS Safety Report 6450899-2 (Version None)
Quarter: 2009Q4

REPORT INFORMATION
  Report Type: 
  Country: None (occurrence: None)
  Receive Date: 20091123
  Receipt Date: 20091119
  Transmission Date: 20100525
  Serious: Yes (Other)
  Sender: FDA-Public Use
  Company Number: A0818241A

PATIENT
  Age: 72 Year
  Sex: Female

DRUGS (2)
  1. ABREVA [Suspect]
     Route: 061
     Dates: start: 20091118, end: 20091118
  2. PANDEMIC VACCINE H1N1 UNSPECIFIED [Concomitant]
     Route: 030

REACTIONS (3)
  - CEREBROVASCULAR ACCIDENT [None]
  - FACIAL PALSY [None]
  - HYPOAESTHESIA FACIAL [None]
